FAERS Safety Report 4734673-0 (Version None)
Quarter: 2005Q3

REPORT INFORMATION
  Report Type: 
  Country: None (occurrence: None)
  Receive Date: 20050804
  Receipt Date: 20050801
  Transmission Date: 20060218
  Serious: Yes (Hospitalization)
  Sender: FDA-Public Use
  Company Number: AU-GLAXOSMITHKLINE-B0389552A

PATIENT
  Age: 5 Year
  Sex: Female

DRUGS (1)
  1. NICABATE CQ CLEAR 21MG [Suspect]
     Dosage: 21MG PER DAY
     Route: 062
     Dates: start: 20041201, end: 20041201

REACTIONS (3)
  - ACCIDENTAL OVERDOSE [None]
  - HEADACHE [None]
  - VOMITING [None]
